FAERS Safety Report 6550109-1 (Version None)
Quarter: 2010Q1

REPORT INFORMATION
  Report Type: 
  Country: None (occurrence: None)
  Receive Date: 20100119
  Receipt Date: 20100107
  Transmission Date: 20100710
  Serious: Yes (Other)
  Sender: FDA-Public Use
  Company Number: FR-2010-0025

PATIENT
  Sex: Female

DRUGS (3)
  1. NAVELBINE [Suspect]
     Indication: BREAST CANCER METASTATIC
  2. ZOMETA [Concomitant]
  3. XELODA [Concomitant]

REACTIONS (1)
  - RETINAL VEIN OCCLUSION [None]
